FAERS Safety Report 6421465-X (Version None)
Quarter: 2009Q4

REPORT INFORMATION
  Report Type: 
  Country: None (occurrence: None)
  Receive Date: 20091030
  Receipt Date: 20091020
  Transmission Date: 20100525
  Serious: Yes (Hospitalization)
  Sender: FDA-Public Use
  Company Number: JP-PFIZER INC-2009287472

PATIENT
  Age: 60 Year

DRUGS (4)
  1. SUNITINIB MALATE [Suspect]
     Indication: BREAST CANCER METASTATIC
     Dosage: 25 MG, 1X/DAY
     Route: 048
     Dates: start: 20090605
  2. CAPECITABINE [Suspect]
     Indication: BREAST CANCER METASTATIC
     Dosage: 750 MG, 2X/DAY FOR 14 DAYS EVERY 3 WEEKS
     Route: 048
     Dates: start: 20090605
  3. LEUCON [Concomitant]
     Indication: NEUTROPENIA
     Dosage: UNK
     Route: 048
     Dates: start: 20090724
  4. POLAPREZINC [Concomitant]
     Indication: DYSGEUSIA
     Route: 048
     Dates: start: 20090724

REACTIONS (1)
  - PLEURAL EFFUSION [None]
